FAERS Safety Report 15623213 (Version 1)
Quarter: 2018Q4

REPORT INFORMATION
  Report Type: Spontaneous
  Country: KR (occurrence: KR)
  Receive Date: 20181115
  Receipt Date: 20181115
  Transmission Date: 20190205
  Serious: Yes (Other)
  Sender: FDA-Public Use
  Company Number: KR-AKRON, INC.-2058915

PATIENT
  Age: 51 Year
  Sex: Female

DRUGS (1)
  1. COSOPT [Suspect]
     Active Substance: DORZOLAMIDE HYDROCHLORIDE\TIMOLOL MALEATE
     Indication: ANGLE CLOSURE GLAUCOMA
     Route: 047
     Dates: start: 20131011, end: 20170220

REACTIONS (5)
  - Macular oedema [Recovered/Resolved]
  - Overdose [Unknown]
  - Hypotony of eye [Unknown]
  - Cataract [Unknown]
  - Intraocular pressure fluctuation [Unknown]

NARRATIVE: CASE EVENT DATE: 20170220
